FAERS Safety Report 16399327 (Version 3)
Quarter: 2019Q2

REPORT INFORMATION
  Report Type: Spontaneous
  Country: CA (occurrence: CA)
  Receive Date: 20190606
  Receipt Date: 20190619
  Transmission Date: 20190711
  Serious: Yes (Death)
  Sender: FDA-Public Use
  Company Number: CA-BIOVITRUM-2019CA1322

PATIENT
  Sex: Male
  Weight: 51 kg

DRUGS (6)
  1. PIPERACILLIN AND TAZOBACTAM [Concomitant]
     Active Substance: PIPERACILLIN SODIUM\TAZOBACTAM SODIUM
  2. ANIDULAFUNGIN [Concomitant]
     Active Substance: ANIDULAFUNGIN
  3. LEVOFLOXACIN. [Concomitant]
     Active Substance: LEVOFLOXACIN
  4. DEXAMETHASON [Concomitant]
     Active Substance: DEXAMETHASONE
  5. RUXOLITINIB [Concomitant]
     Active Substance: RUXOLITINIB
     Indication: MYELOPROLIFERATIVE NEOPLASM
     Dates: end: 20190528
  6. GAMIFANT [Suspect]
     Active Substance: EMAPALUMAB-LZSG
     Indication: HAEMOPHAGOCYTIC LYMPHOHISTIOCYTOSIS
     Dates: start: 20190527, end: 20190527

REACTIONS (3)
  - Hypoxia [Fatal]
  - Confusional state [Fatal]
  - Pancreatitis acute [Fatal]
